FAERS Safety Report 26121186 (Version 1)
Quarter: 2025Q4

REPORT INFORMATION
  Report Type: Report from Study
  Country: AE (occurrence: AE)
  Receive Date: 20251204
  Receipt Date: 20251204
  Transmission Date: 20260118
  Serious: Yes (Other)
  Sender: BIOVITRUM
  Company Number: AE-AstraZeneca-CH-01000004A

PATIENT
  Sex: Female

DRUGS (1)
  1. PALIVIZUMAB [Suspect]
     Active Substance: PALIVIZUMAB
     Indication: Product used for unknown indication
     Route: 065

REACTIONS (1)
  - Cardiac disorder [Unknown]
